FAERS Safety Report 9146583 (Version 1)
Quarter: 2013Q1

REPORT INFORMATION
  Report Type: Report from Study
  Country: IT (occurrence: IT)
  Receive Date: 20130307
  Receipt Date: 20130307
  Transmission Date: 20140127
  Serious: Yes (Hospitalization)
  Sender: FDA-Public Use
  Company Number: IT-PFIZER INC-2013066592

PATIENT
  Age: 54 Year
  Sex: Male
  Weight: 52 kg

DRUGS (9)
  1. RAPAMUNE [Suspect]
     Indication: PROPHYLAXIS AGAINST TRANSPLANT REJECTION
     Dosage: 2 MG, ONCE A DAY
     Route: 048
     Dates: start: 20070731, end: 20130205
  2. TACROLIMUS [Suspect]
     Indication: IMMUNOSUPPRESSION
     Dosage: 6.5 MG, ONCE A DAY
     Route: 048
     Dates: start: 20070621
  3. LAMIVUDINE [Concomitant]
     Indication: ANTIVIRAL PROPHYLAXIS
     Dosage: 100 MG, ONCE A DAY
     Route: 048
     Dates: start: 20070621
  4. IG - IMMUNOGLOBULINS [Concomitant]
     Indication: ANTIVIRAL PROPHYLAXIS
     Dosage: 500 MG, EVERY 10 DAYS
     Route: 058
     Dates: start: 20070621
  5. PPI [Concomitant]
     Indication: PROPHYLAXIS
     Dosage: 20 MG, ONCE A DAY
     Route: 048
     Dates: start: 20070621
  6. ENALAPRIL [Concomitant]
     Indication: HYPERTENSION
     Dosage: 5 MG, ONCE A DAY
     Route: 048
  7. ASS [Concomitant]
     Indication: PROPHYLAXIS
     Dosage: 100 MG, ONCE A DAY
     Route: 048
     Dates: start: 200706
  8. OMEGA 3 [Concomitant]
     Indication: HYPERLIPIDAEMIA
     Dosage: 1 G, 1X/DAY 5G/W
     Route: 048
  9. FLUXARTEN [Concomitant]
     Indication: MIGRAINE
     Dosage: 5 MG, UNK
     Route: 048

REACTIONS (1)
  - Lung adenocarcinoma [Recovered/Resolved]
